FAERS Safety Report 11972112 (Version 1)
Quarter: 2016Q1

REPORT INFORMATION
  Report Type: Report from Study
  Country: KR (occurrence: KR)
  Receive Date: 20160128
  Receipt Date: 20160128
  Transmission Date: 20160526
  Serious: Yes (Hospitalization)
  Sender: FDA-Public Use
  Company Number: KR-ASTRAZENECA-2016SE08682

PATIENT
  Age: 28774 Day
  Sex: Male
  Weight: 56 kg

DRUGS (6)
  1. FORXIGA [Suspect]
     Active Substance: DAPAGLIFLOZIN
     Indication: TYPE 2 DIABETES MELLITUS
     Route: 048
     Dates: start: 20150626, end: 20151217
  2. FASTIC [Concomitant]
     Active Substance: NATEGLINIDE
     Indication: HYPOGLYCAEMIA
     Route: 048
     Dates: start: 20150925, end: 20151217
  3. DIOVAN [Concomitant]
     Active Substance: VALSARTAN
     Indication: HYPOGLYCAEMIA
     Route: 048
     Dates: start: 20140221
  4. ACTOS [Concomitant]
     Active Substance: PIOGLITAZONE HYDROCHLORIDE
     Indication: HYPOGLYCAEMIA
     Route: 048
     Dates: start: 20150327, end: 20150625
  5. HUMALOG [Concomitant]
     Active Substance: INSULIN LISPRO
     Indication: HYPOGLYCAEMIA
     Route: 058
     Dates: start: 20141219, end: 20150625
  6. LIPITOR [Concomitant]
     Active Substance: ATORVASTATIN CALCIUM
     Indication: HYPERCHOLESTEROLAEMIA
     Route: 048
     Dates: start: 20140213

REACTIONS (4)
  - Hyperglycaemia [Recovered/Resolved]
  - Pollakiuria [Unknown]
  - Weight decreased [Unknown]
  - Thirst [Unknown]

NARRATIVE: CASE EVENT DATE: 20151217
